FAERS Safety Report 9387990 (Version 1)
Quarter: 2013Q3

REPORT INFORMATION
  Report Type: Spontaneous
  Country: US (occurrence: None)
  Receive Date: 20130701
  Receipt Date: 20130701
  Transmission Date: 20140515
  Serious: Yes (Death, Hospitalization)
  Sender: FDA-Public Use
  Company Number: USA/USA/13/0030283

PATIENT
  Age: 28 Year
  Sex: Female
  Weight: 70 kg

DRUGS (5)
  1. IBUPROFEN (IBUPROFEN) [Suspect]
     Indication: CONTUSION
  2. METAXALONE (METAXALONE) [Suspect]
     Indication: PRODUCT USED FOR UNKNOWN INDICATION
  3. METHOCARBAMOL [Suspect]
     Indication: PRODUCT USED FOR UNKNOWN INDICATION
  4. VALDECOXIB [Suspect]
  5. CYCLOBENZAPRINE (CYCLOBENZAPRINE) [Suspect]
     Indication: PRODUCT USED FOR UNKNOWN INDICATION

REACTIONS (18)
  - Hypertension [None]
  - Cerebral haemorrhage [None]
  - Diabetes mellitus [None]
  - Cardiomyopathy [None]
  - Respiratory failure [None]
  - Renal failure [None]
  - Gastritis [None]
  - Coma [None]
  - Overdose [None]
  - Pain in extremity [None]
  - Palpitations [None]
  - Dizziness [None]
  - Grip strength decreased [None]
  - Menorrhagia [None]
  - Kidney small [None]
  - Haematocrit decreased [None]
  - Haemodialysis [None]
  - General physical health deterioration [None]
